FAERS Safety Report 7239441-6 (Version None)
Quarter: 2011Q1

REPORT INFORMATION
  Report Type: 
  Country: None (occurrence: None)
  Receive Date: 20110121
  Receipt Date: 20101227
  Transmission Date: 20110831
  Serious: Yes (Other)
  Sender: FDA-Public Use
  Company Number: US-BAYER-200942583NA

PATIENT
  Sex: Female
  Weight: 58 kg

DRUGS (5)
  1. LORAZEPAM [Concomitant]
     Route: 065
     Dates: start: 20070924, end: 20091113
  2. YAZ [Suspect]
     Indication: CONTRACEPTION
     Route: 065
     Dates: start: 20081103, end: 20091001
  3. PAROXETINE HCL [Concomitant]
     Route: 065
     Dates: start: 20050101
  4. METHYLPHENIDATE [Concomitant]
     Route: 065
     Dates: start: 20070820, end: 20081028
  5. BUPROPION [Concomitant]
     Route: 065
     Dates: start: 20080202

REACTIONS (2)
  - CHOLECYSTITIS [None]
  - CHOLELITHIASIS [None]
